FAERS Safety Report 9722947 (Version 1)
Quarter: 2013Q4

REPORT INFORMATION
  Report Type: Spontaneous
  Country: US (occurrence: None)
  Receive Date: 20131127
  Receipt Date: 20131127
  Transmission Date: 20140711
  Serious: Yes (Hospitalization)
  Sender: FDA-Public Use
  Company Number: None

PATIENT
  Age: 1 Year
  Sex: Female
  Weight: 12.9 kg

DRUGS (5)
  1. PEG-L-ASPARAGINASE (PEGASPARGASE, ONCOSPAR) [Suspect]
     Dates: end: 20131122
  2. CYTARABINE [Suspect]
     Dates: end: 20131118
  3. MERCAPTOPURINE [Suspect]
     Dates: end: 20131121
  4. CYCLOPHOSPHAMIDE [Suspect]
     Dates: end: 20131108
  5. VINCRISTINE [Suspect]
     Dates: end: 20131122

REACTIONS (5)
  - Urosepsis [None]
  - Unresponsive to stimuli [None]
  - Bradycardia [None]
  - Cardiac arrest [None]
  - Laryngeal oedema [None]
